FAERS Safety Report 6806306-0 (Version None)
Quarter: 2010Q2

REPORT INFORMATION
  Report Type: 
  Country: None (occurrence: None)
  Receive Date: 20100629
  Receipt Date: 20100617
  Transmission Date: 20101027
  Serious: Yes (Other)
  Sender: FDA-Public Use
  Company Number: CN-GILEAD-E2B_00000764

PATIENT

DRUGS (1)
  1. HEPSERA [Suspect]
     Route: 065

REACTIONS (1)
  - RENAL FAILURE [None]
